FAERS Safety Report 9717582 (Version 1)
Quarter: 2013Q4

REPORT INFORMATION
  Report Type: Spontaneous
  Country: US (occurrence: None)
  Receive Date: 20131125
  Receipt Date: 20131125
  Transmission Date: 20140711
  Serious: Yes (Hospitalization)
  Sender: FDA-Public Use
  Company Number: 2013-US-003292

PATIENT
  Age: 54 Year
  Sex: Female
  Weight: 79.4 kg

DRUGS (5)
  1. XYREM (SODIUM OXYBATE) ORAL SOLUTION, 500MG/ML [Suspect]
     Indication: NARCOLEPSY
     Route: 048
     Dates: start: 201308, end: 2013
  2. SYNTHROID (LEVOTHYROXINE SODIUM) [Concomitant]
  3. ZESTRIL (LISINOPRIL) [Concomitant]
  4. DILANTIN (PHENYTOIN SODIUM) [Concomitant]
  5. ADDERALL (AMFETAMINE ASPARTATE, AMFETAMINE SULFATE, DEXAMFETAMINE SACCHARATE, DEXAMFETAMINE SULFATE) [Concomitant]

REACTIONS (1)
  - Pneumonia [None]
